FAERS Safety Report 19624148 (Version 1)
Quarter: 2021Q3

REPORT INFORMATION
  Report Type: Spontaneous
  Country: FR (occurrence: FR)
  Receive Date: 20210729
  Receipt Date: 20210729
  Transmission Date: 20211014
  Serious: Yes (Hospitalization)
  Sender: FDA-Public Use
  Company Number: FR-SUN PHARMACEUTICAL INDUSTRIES LTD-2021RR-305909

PATIENT
  Age: 19 Year
  Sex: Female
  Weight: 49 kg

DRUGS (2)
  1. PARACETAMOL [Suspect]
     Active Substance: ACETAMINOPHEN
     Indication: INTENTIONAL OVERDOSE
     Dosage: 12 GRAM, UNK
     Route: 048
     Dates: start: 20210515, end: 20210515
  2. TRIMEBUTINE [Suspect]
     Active Substance: TRIMEBUTINE
     Indication: INTENTIONAL OVERDOSE
     Dosage: 166 DOSAGE FORM, UNK
     Route: 048
     Dates: start: 20210515, end: 20210515

REACTIONS (5)
  - Hepatic failure [Recovering/Resolving]
  - Electrocardiogram QT prolonged [Recovering/Resolving]
  - Coma [Recovering/Resolving]
  - Poisoning deliberate [Recovering/Resolving]
  - Pneumonia aspiration [Recovering/Resolving]

NARRATIVE: CASE EVENT DATE: 20210515
